FAERS Safety Report 17105287 (Version 1)
Quarter: 2019Q4

REPORT INFORMATION
  Report Type: Spontaneous
  Country: US (occurrence: US)
  Receive Date: 20191203
  Receipt Date: 20191203
  Transmission Date: 20200122
  Serious: No
  Sender: FDA-Public Use
  Company Number: US-TEVA-2019-US-1147786

PATIENT
  Sex: Female

DRUGS (1)
  1. AMPHETAMINE W/DEXTROAMPHETAMINE [Suspect]
     Active Substance: AMPHETAMINE SULFATE\DEXTROAMPHETAMINE
     Indication: ATTENTION DEFICIT/HYPERACTIVITY DISORDER
     Dosage: 1 CAPSULE PER DAY
     Route: 065
     Dates: start: 201910

REACTIONS (2)
  - Drug ineffective [Unknown]
  - Product odour abnormal [Unknown]

NARRATIVE: CASE EVENT DATE: 201910
